FAERS Safety Report 5097368-2 (Version None)
Quarter: 2006Q3

REPORT INFORMATION
  Report Type: 
  Country: None (occurrence: None)
  Receive Date: 20060901
  Receipt Date: 20060818
  Transmission Date: 20061208
  Serious: Yes (Hospitalization)
  Sender: FDA-Public Use
  Company Number: 430004N06FRA

PATIENT
  Age: 37 Year
  Sex: Female

DRUGS (2)
  1. NOVANTRONE (MITOXANTONE HYDROCHLORIDE) [Suspect]
     Dosage: 20 MG, 1 IN 1 CYCLE, INTRAVENOUS
     Route: 042
     Dates: start: 20060602, end: 20060602
  2. METHYLPREDNISOLONE SODIUM SUCCINATE [Suspect]
     Dosage: 1 G, 1 IN 1 CYCLE
     Dates: start: 20060602, end: 20060602

REACTIONS (3)
  - CHILLS [None]
  - DERMATITIS EXFOLIATIVE [None]
  - FACE OEDEMA [None]
